FAERS Safety Report 7646427-6 (Version None)
Quarter: 2011Q3

REPORT INFORMATION
  Report Type: 
  Country: None (occurrence: None)
  Receive Date: 20110725
  Receipt Date: 20110707
  Transmission Date: 20111222
  Serious: Yes (Other)
  Sender: FDA-Public Use
  Company Number: JHP201100317

PATIENT
  Age: 13 Year
  Sex: Female

DRUGS (1)
  1. DANTROLENE SODIUM [Suspect]
     Indication: HYPERTHERMIA MALIGNANT
     Dosage: 100 MG, TOTAL, INTRAVENOUS
     Route: 042

REACTIONS (3)
  - RESPIRATORY FAILURE [None]
  - DEAFNESS TRANSITORY [None]
  - MUSCULAR WEAKNESS [None]
